FAERS Safety Report 4357733-5 (Version None)
Quarter: 2004Q2

REPORT INFORMATION
  Report Type: 
  Country: None (occurrence: None)
  Receive Date: 20040511
  Receipt Date: 20040504
  Transmission Date: 20050107
  Serious: Yes (Life-Threatening, Hospitalization, Other)
  Sender: FDA-Public Use
  Company Number: HQWYE566222APR04

PATIENT
  Age: 56 Year
  Sex: Female

DRUGS (9)
  1. EFFEXOR XR [Suspect]
     Indication: DEPRESSION
     Dosage: ORAL
     Route: 048
     Dates: start: 20040201, end: 20040401
  2. EFFEXOR XR [Suspect]
     Indication: SCHIZOPHRENIA
     Dosage: ORAL
     Route: 048
     Dates: start: 20040201, end: 20040401
  3. EFFEXOR XR [Suspect]
     Dosage: 150 MG 2X PER 1 DAY, ORAL
     Route: 048
     Dates: start: 20040201, end: 20040401
  4. EFFEXOR XR [Suspect]
     Dosage: 150 MG 2X PER 1 DAY, ORAL
     Route: 048
     Dates: start: 20040401
  5. ALPRAZOLAM [Concomitant]
  6. ZYPREXA [Concomitant]
  7. NILSTAT (NYSTATIN) [Concomitant]
  8. ASPIRIN [Concomitant]
  9. ENOXAPARIN SODIUM [Concomitant]

REACTIONS (5)
  - ANXIETY [None]
  - CARDIAC ARREST [None]
  - CIRCULATORY COLLAPSE [None]
  - HYPERVENTILATION [None]
  - HYPOPHOSPHATAEMIA [None]
